FAERS Safety Report 23979721 (Version 2)
Quarter: 2024Q3

REPORT INFORMATION
  Report Type: Spontaneous
  Country: US (occurrence: None)
  Receive Date: 20240616
  Receipt Date: 20240831
  Transmission Date: 20241017
  Serious: No
  Sender: ASTRAZENECA
  Company Number: 2024A134140

PATIENT
  Sex: Male

DRUGS (1)
  1. BYDUREON BCISE [Suspect]
     Active Substance: EXENATIDE
     Dates: start: 20240606

REACTIONS (5)
  - Contusion [Unknown]
  - Rash [Unknown]
  - Device malfunction [Unknown]
  - Incorrect disposal of product [Unknown]
  - Device use issue [Unknown]
